FAERS Safety Report 5696606-2 (Version None)
Quarter: 2008Q2

REPORT INFORMATION
  Report Type: 
  Country: None (occurrence: None)
  Receive Date: 20080408
  Receipt Date: 20061013
  Transmission Date: 20081010
  Serious: Yes (Hospitalization)
  Sender: FDA-Public Use
  Company Number: US-BAYER-US-2005-027445

PATIENT
  Age: 17 Year
  Sex: Female
  Weight: 61 kg

DRUGS (1)
  1. YASMIN [Suspect]
     Indication: MENSTRUATION IRREGULAR
     Route: 048
     Dates: start: 20050901, end: 20051116

REACTIONS (1)
  - PULMONARY EMBOLISM [None]
